FAERS Safety Report 18064750 (Version 2)
Quarter: 2020Q3

REPORT INFORMATION
  Report Type: Spontaneous
  Country: SG (occurrence: SG)
  Receive Date: 20200724
  Receipt Date: 20200812
  Transmission Date: 20201103
  Serious: Yes (Hospitalization)
  Sender: FDA-Public Use
  Company Number: SG-STRIDES ARCOLAB LIMITED-2020SP008344

PATIENT
  Age: 55 Year
  Sex: Male

DRUGS (8)
  1. PREDNISOLONE. [Suspect]
     Active Substance: PREDNISOLONE
     Indication: DYSHIDROTIC ECZEMA
     Dosage: UNK
     Route: 065
     Dates: start: 2017
  2. CYCLOSPORINE. [Suspect]
     Active Substance: CYCLOSPORINE
     Indication: DYSHIDROTIC ECZEMA
     Dosage: UNK
     Route: 065
     Dates: start: 2017, end: 201902
  3. AZATHIOPRINE. [Suspect]
     Active Substance: AZATHIOPRINE
     Indication: DYSHIDROTIC ECZEMA
     Dosage: UNK
     Route: 065
     Dates: start: 2018, end: 201901
  4. METHOTREXATE. [Suspect]
     Active Substance: METHOTREXATE
     Indication: DYSHIDROTIC ECZEMA
     Dosage: UNK
     Route: 065
     Dates: start: 2017
  5. AMLODIPINE [Suspect]
     Active Substance: AMLODIPINE BESYLATE
     Indication: HYPERTENSION
     Dosage: 5 MILLIGRAM PER DAY
     Route: 065
     Dates: start: 2013, end: 2016
  6. PREDNISOLONE. [Suspect]
     Active Substance: PREDNISOLONE
     Dosage: 20 MILLIGRAM PER DAY
     Route: 065
     Dates: start: 2019, end: 2019
  7. PREDNISOLONE. [Suspect]
     Active Substance: PREDNISOLONE
     Dosage: 4 MILLIGRAM
     Route: 065
     Dates: start: 2019
  8. AMLODIPINE [Suspect]
     Active Substance: AMLODIPINE BESYLATE
     Dosage: UNK, RESTARTED PRIOR TO ERUPTION
     Route: 065
     Dates: start: 2018, end: 201902

REACTIONS (6)
  - Skin plaque [Recovered/Resolved]
  - Rash erythematous [Recovered/Resolved]
  - Skin mass [Recovered/Resolved]
  - Lymphadenopathy [Unknown]
  - Rash papular [Recovered/Resolved]
  - Pseudolymphoma [Recovered/Resolved]

NARRATIVE: CASE EVENT DATE: 2018
